FAERS Safety Report 25318965 (Version 2)
Quarter: 2025Q2

REPORT INFORMATION
  Report Type: Report from Study
  Country: US (occurrence: US)
  Receive Date: 20250515
  Receipt Date: 20250606
  Transmission Date: 20250716
  Serious: Yes (Hospitalization, Other)
  Sender: UCB
  Company Number: US-UCBSA-2025012059

PATIENT
  Sex: Male

DRUGS (2)
  1. CERTOLIZUMAB PEGOL [Suspect]
     Active Substance: CERTOLIZUMAB PEGOL
     Indication: Psoriatic arthropathy
     Dosage: 400 MILLIGRAM, EV 2 WEEKS(QOW)
     Route: 058
     Dates: start: 20250101, end: 2025
  2. CERTOLIZUMAB PEGOL [Suspect]
     Active Substance: CERTOLIZUMAB PEGOL
     Dosage: 400 MILLIGRAM, EV 2 WEEKS(QOW)
     Route: 058
     Dates: start: 202502, end: 2025

REACTIONS (6)
  - Spinal laminectomy [Recovering/Resolving]
  - Spinal fusion surgery [Recovering/Resolving]
  - Surgery [Recovering/Resolving]
  - Sepsis [Recovering/Resolving]
  - Staphylococcal infection [Recovering/Resolving]
  - Intentional dose omission [Unknown]

NARRATIVE: CASE EVENT DATE: 20250101
